FAERS Safety Report 25651241 (Version 3)
Quarter: 2025Q3

REPORT INFORMATION
  Report Type: Spontaneous
  Country: EU (occurrence: EU)
  Receive Date: 20250806
  Receipt Date: 20250813
  Transmission Date: 20251021
  Serious: Yes (Death, Hospitalization, Other)
  Sender: BRACCO
  Company Number: EU-BRACCO-2023NO04450

PATIENT
  Sex: Male

DRUGS (1)
  1. IOMERON [Suspect]
     Active Substance: IOMEPROL
     Indication: Computerised tomogram thorax
     Route: 042
     Dates: start: 20230411, end: 20230411

REACTIONS (1)
  - Syncope [Fatal]

NARRATIVE: CASE EVENT DATE: 20230411
